FAERS Safety Report 5816975-X (Version None)
Quarter: 2008Q3

REPORT INFORMATION
  Report Type: 
  Country: None (occurrence: None)
  Receive Date: 20080722
  Receipt Date: 20080625
  Transmission Date: 20090109
  Serious: Yes (Death)
  Sender: FDA-Public Use
  Company Number: GB-JNJFOC-20080704720

PATIENT
  Sex: Female

DRUGS (5)
  1. DOXIL [Suspect]
     Indication: BREAST CANCER
     Route: 042
  2. NEUPOGEN [Suspect]
     Indication: BREAST CANCER
     Route: 058
  3. DOCETAXEL [Suspect]
     Indication: BREAST CANCER
     Route: 042
  4. DEXAMETHASONE [Concomitant]
     Route: 048
  5. AMINOPYRIDINE [Concomitant]
     Route: 065

REACTIONS (4)
  - ASTHENIA [None]
  - DEATH [None]
  - HYPERGLYCAEMIA [None]
  - PAIN IN EXTREMITY [None]
